FAERS Safety Report 7590526-4 (Version None)
Quarter: 2011Q3

REPORT INFORMATION
  Report Type: 
  Country: None (occurrence: None)
  Receive Date: 20110705
  Receipt Date: 20110622
  Transmission Date: 20111222
  Serious: Yes (Other)
  Sender: FDA-Public Use
  Company Number: CA-BAYER-2011-053940

PATIENT
  Age: 20 Year
  Sex: Female
  Weight: 51 kg

DRUGS (1)
  1. YASMIN [Suspect]
     Dosage: UNK, QD
     Route: 048

REACTIONS (3)
  - MOTION SICKNESS [None]
  - VISUAL ACUITY REDUCED [None]
  - HEADACHE [None]
